FAERS Safety Report 5514521-1 (Version None)
Quarter: 2007Q4

REPORT INFORMATION
  Report Type: 
  Country: None (occurrence: None)
  Receive Date: 20071113
  Receipt Date: 20071106
  Transmission Date: 20080405
  Serious: Yes (Hospitalization)
  Sender: FDA-Public Use
  Company Number: PHEH2007US14595

PATIENT
  Age: 86 Year
  Sex: Male

DRUGS (4)
  1. DIOVAN [Suspect]
     Indication: HYPERTENSION
     Dosage: 300 MG, QD
     Route: 048
     Dates: start: 20040510
  2. DIOVAN [Suspect]
     Dosage: UNK, UNK
  3. DABIGATRAN [Suspect]
     Dates: start: 20061128
  4. DIGOXIN [Concomitant]
     Dosage: 125 UG, QD
     Route: 048

REACTIONS (2)
  - HYPOTENSION [None]
  - LETHARGY [None]
